FAERS Safety Report 4428444-2 (Version None)
Quarter: 2004Q3

REPORT INFORMATION
  Report Type: 
  Country: None (occurrence: None)
  Receive Date: 20040813
  Receipt Date: 20040802
  Transmission Date: 20050211
  Serious: Yes (Life-Threatening, Hospitalization)
  Sender: FDA-Public Use
  Company Number: TEST00304002314

PATIENT
  Age: 76 Year
  Sex: Male

DRUGS (10)
  1. ANDROGEL [Suspect]
     Indication: ILL-DEFINED DISORDER
     Dosage: 2.5 MG DAILY TD
     Dates: start: 20040201, end: 20040301
  2. YOCORAL (YOHIMBINE) [Suspect]
     Indication: ILL-DEFINED DISORDER
     Dosage: 5 MG DAILY PO
     Route: 048
     Dates: start: 20040308, end: 20040308
  3. ISOSORBIDE MONONITRATE [Concomitant]
  4. CHRONOADALATE (NIFEDIPINE) [Concomitant]
  5. SINTROM [Concomitant]
  6. CORDARONE [Concomitant]
  7. STILNOX (ZOLPIDEM) [Concomitant]
  8. ZOCOR [Concomitant]
  9. VASTAREL (TRIMETAZIDINE HYDROCHLORIDE) [Concomitant]
  10. TOCO 500 (TOCOPHEROL) [Concomitant]

REACTIONS (6)
  - ERYTHROSIS [None]
  - HYPERTENSION [None]
  - MYOCARDIAL INFARCTION [None]
  - PALPITATIONS [None]
  - TACHYCARDIA [None]
  - TREMOR [None]
